FAERS Safety Report 9767121 (Version 1)
Quarter: 2013Q4

REPORT INFORMATION
  Report Type: Spontaneous
  Country: US (occurrence: None)
  Receive Date: 20131216
  Receipt Date: 20131216
  Transmission Date: 20140711
  Serious: Yes (Other)
  Sender: FDA-Public Use
  Company Number: None

PATIENT
  Age: 74 Year
  Sex: Female

DRUGS (2)
  1. ZYRTEC [Suspect]
     Indication: ESSENTIAL TREMOR
  2. PROPANOL ER [Concomitant]

REACTIONS (1)
  - Dysgeusia [None]
